FAERS Safety Report 10252303 (Version 2)
Quarter: 2014Q3

REPORT INFORMATION
  Report Type: Report from Study
  Country: BR (occurrence: BR)
  Receive Date: 20140623
  Receipt Date: 20140718
  Transmission Date: 20150326
  Serious: Yes (Death, Other)
  Sender: FDA-Public Use
  Company Number: PHHY2014BR076946

PATIENT
  Sex: Female
  Weight: 54 kg

DRUGS (6)
  1. DIOVAN HCT [Suspect]
     Active Substance: HYDROCHLOROTHIAZIDE\VALSARTAN
     Indication: HYPERTENSION
     Dosage: 80/12.5 MG, ONCE A DAY
  2. DRUG THERAPY NOS [Suspect]
     Active Substance: UNSPECIFIED INGREDIENT
     Indication: ANTICOAGULANT THERAPY
     Dosage: UNK
  3. ALOIS [Concomitant]
     Active Substance: MEMANTINE
     Indication: DEMENTIA ALZHEIMER^S TYPE
     Dosage: 2 TABLETS (10 MG), DAILY
     Route: 048
  4. PROPRANOLOL [Concomitant]
     Active Substance: PROPRANOLOL\PROPRANOLOL HYDROCHLORIDE
     Indication: BLOOD PRESSURE ABNORMAL
     Dosage: 10 MG, UNK
  5. MEMANTINA [Concomitant]
     Indication: DEMENTIA ALZHEIMER^S TYPE
     Dosage: 3 TABLETS (10 MG), UKN
  6. AAS [Concomitant]
     Active Substance: ASPIRIN
     Indication: CARDIAC DISORDER
     Dosage: 1 TABLET (100 MG), DAILY
     Route: 048

REACTIONS (9)
  - Dementia Alzheimer^s type [Fatal]
  - Blood pressure decreased [Not Recovered/Not Resolved]
  - Septic shock [Fatal]
  - Pneumonia [Fatal]
  - Infection [Not Recovered/Not Resolved]
  - Renal disorder [Not Recovered/Not Resolved]
  - Atrial flutter [Fatal]
  - Heart rate increased [Not Recovered/Not Resolved]
  - Blood pressure increased [Not Recovered/Not Resolved]
